FAERS Safety Report 6087107-0 (Version None)
Quarter: 2009Q1

REPORT INFORMATION
  Report Type: 
  Country: None (occurrence: None)
  Receive Date: 20090223
  Receipt Date: 20090216
  Transmission Date: 20090719
  Serious: Yes (Hospitalization)
  Sender: FDA-Public Use
  Company Number: US-ELI_LILLY_AND_COMPANY-US200902003810

PATIENT
  Age: 55 Year
  Sex: Female

DRUGS (2)
  1. BYETTA [Suspect]
     Route: 058
     Dates: start: 20081201, end: 20090101
  2. BYETTA [Suspect]
     Route: 058
     Dates: start: 20090101, end: 20090214

REACTIONS (1)
  - PANCREATITIS [None]
